FAERS Safety Report 8818931 (Version 1)
Quarter: 2012Q4

REPORT INFORMATION
  Report Type: Spontaneous
  Country: JP (occurrence: None)
  Receive Date: 20121002
  Receipt Date: 20121002
  Transmission Date: 20130627
  Serious: Yes (Hospitalization)
  Sender: FDA-Public Use
  Company Number: IMP_06000_2012

PATIENT
  Age: 71 Year
  Sex: Male

DRUGS (4)
  1. CABERGOLINE [Suspect]
     Indication: PARKINSON^S DISEASE
     Dates: start: 2006
  2. PROPRANOLOL [Concomitant]
  3. TRIHEXYPHENIDYL HYDROCHLORIDE [Concomitant]
  4. CARBIDOPA [Concomitant]

REACTIONS (3)
  - Pleural effusion [None]
  - Interstitial lung disease [None]
  - Respiratory failure [None]
